FAERS Safety Report 10833737 (Version 1)
Quarter: 2015Q1

REPORT INFORMATION
  Report Type: Spontaneous
  Country: JM (occurrence: JM)
  Receive Date: 20150219
  Receipt Date: 20150219
  Transmission Date: 20150721
  Serious: Yes (Death)
  Sender: FDA-Public Use
  Company Number: JM-B.I. PHARMACEUTICALS,INC./RIDGEFIELD-2015-BI-08216CN

PATIENT
  Sex: Female

DRUGS (1)
  1. TWYNSTA [Suspect]
     Active Substance: AMLODIPINE BESYLATE\TELMISARTAN
     Indication: BLOOD PRESSURE
     Dosage: DOSE PER APPLICATION:  80/5
     Route: 065

REACTIONS (2)
  - Chikungunya virus infection [Fatal]
  - Chikungunya virus infection [Unknown]
